FAERS Safety Report 5762557-8 (Version None)
Quarter: 2008Q2

REPORT INFORMATION
  Report Type: 
  Country: None (occurrence: None)
  Receive Date: 20080609
  Receipt Date: 20080527
  Transmission Date: 20081010
  Serious: Yes (Death)
  Sender: FDA-Public Use
  Company Number: B0522755A

PATIENT
  Age: 59 Year
  Sex: Male

DRUGS (5)
  1. ZOPHREN [Suspect]
     Indication: PREMEDICATION
     Dosage: 8MG PER DAY
     Route: 042
     Dates: start: 20070221, end: 20070221
  2. CISPLATIN [Suspect]
     Dosage: 50MG PER DAY
     Route: 042
     Dates: start: 20070221, end: 20070221
  3. SOLU-MEDROL [Suspect]
     Indication: PREMEDICATION
     Dosage: 60MG SINGLE DOSE
     Route: 042
     Dates: start: 20070221, end: 20070221
  4. MANNITOL [Suspect]
     Indication: FLUID REPLACEMENT
     Dosage: 500ML PER DAY
     Route: 042
     Dates: start: 20070221, end: 20070221
  5. ETOPOSIDE [Suspect]
     Dosage: 175MG PER DAY
     Dates: start: 20070221, end: 20070221

REACTIONS (4)
  - CARDIAC ARREST [None]
  - CHEST PAIN [None]
  - MYOCARDIAL INFARCTION [None]
  - VENTRICLE RUPTURE [None]
